FAERS Safety Report 9381259 (Version 1)
Quarter: 2013Q3

REPORT INFORMATION
  Report Type: Spontaneous
  Country: US (occurrence: US)
  Receive Date: 20130703
  Receipt Date: 20130703
  Transmission Date: 20140515
  Serious: Yes (Hospitalization)
  Sender: FDA-Public Use
  Company Number: US-ROCHE-1241850

PATIENT
  Sex: Male

DRUGS (2)
  1. ZELBORAF [Suspect]
     Indication: PRODUCT USED FOR UNKNOWN INDICATION
     Route: 065
     Dates: start: 201305
  2. ZELBORAF [Suspect]
     Dosage: RESTATRED WITH REDUCED DOSE 7 TABLETS PER DAY
     Route: 065

REACTIONS (9)
  - Blood creatinine increased [Unknown]
  - C-reactive protein increased [Unknown]
  - Rash [Recovered/Resolved]
  - Hepatic function abnormal [Unknown]
  - Sunburn [Unknown]
  - Myalgia [Unknown]
  - Heart rate increased [Unknown]
  - Pyrexia [Unknown]
  - Arthralgia [Unknown]
